FAERS Safety Report 7861263-3 (Version None)
Quarter: 2011Q4

REPORT INFORMATION
  Report Type: 
  Country: None (occurrence: None)
  Receive Date: 20111027
  Receipt Date: 20111017
  Transmission Date: 20120403
  Serious: Yes (Hospitalization, Congenital Anomaly)
  Sender: FDA-Public Use
  Company Number: SE-JNJFOC-20111004235

PATIENT
  Sex: Female

DRUGS (9)
  1. PREDNISOLONE [Concomitant]
     Dosage: ON DAYS 145, 193, 260, 265 OF GESTATION
  2. ACETAMINOPHEN [Concomitant]
     Dosage: AT DAYS -42, -7, 145, 184, 216, 257 OF GESTATION
  3. DEXTROPROPOXYPHENE [Concomitant]
     Dosage: AT DAYS 160, 216 AND 260 OF GESTATION
  4. DEXAMETHASONE [Concomitant]
     Dosage: ON DAY 265 OF GESTATION
  5. MESALAMINE [Concomitant]
     Dosage: AT DAY -7 OF GESTATION
  6. OMEPRAZOLE [Concomitant]
     Dosage: AT DAY -42 OF GESTATION
  7. CYCLOPENTOLATE HCL [Concomitant]
     Dosage: ON DAY 265 OF GESTATION
  8. INFLIXIMAB, RECOMBINANT [Suspect]
     Indication: MATERNAL EXPOSURE DURING PREGNANCY
     Dosage: AT DAYS -42, -7 OF GESTATION
     Route: 064
  9. DESOGESTREL [Concomitant]
     Dosage: ON -71 DAY OF GESTATION

REACTIONS (1)
  - CONGENITAL ANOMALY [None]
